FAERS Safety Report 21498190 (Version 18)
Quarter: 2023Q4

REPORT INFORMATION
  Report Type: Spontaneous
  Country: CA (occurrence: CA)
  Receive Date: 20221024
  Receipt Date: 20231230
  Transmission Date: 20240110
  Serious: Yes (Other)
  Sender: FDA-Public Use
  Company Number: CA-CELLTRION INC.-2022CA001944

PATIENT

DRUGS (13)
  1. INFLECTRA [Suspect]
     Active Substance: INFLIXIMAB-DYYB
     Indication: Crohn^s disease
     Dosage: 400 MG, EVERY 0, 2, 6, THEN EVERY 8 WEEKS
     Route: 042
     Dates: start: 20220113
  2. INFLECTRA [Suspect]
     Active Substance: INFLIXIMAB-DYYB
     Dosage: 400 MG, EVERY 0, 2, 6, THEN EVERY 8 WEEKS
     Route: 042
     Dates: start: 20220917
  3. INFLECTRA [Suspect]
     Active Substance: INFLIXIMAB-DYYB
     Dosage: 400 MG, EVERY 0, 2, 6, THEN EVERY 8 WEEKS
     Route: 042
     Dates: start: 20221012
  4. INFLECTRA [Suspect]
     Active Substance: INFLIXIMAB-DYYB
     Dosage: 400 MG, EVERY 0, 2, 6, THEN EVERY 8 WEEKS
     Route: 042
     Dates: start: 20221214
  5. INFLECTRA [Suspect]
     Active Substance: INFLIXIMAB-DYYB
     Dosage: 700 MG, EVERY 6 WEEKS
     Route: 042
     Dates: start: 20230123
  6. INFLECTRA [Suspect]
     Active Substance: INFLIXIMAB-DYYB
     Dosage: 700 MG, EVERY 6 WEEKS
     Route: 042
     Dates: start: 20230310
  7. INFLECTRA [Suspect]
     Active Substance: INFLIXIMAB-DYYB
     Dosage: UNK
     Route: 042
  8. INFLECTRA [Suspect]
     Active Substance: INFLIXIMAB-DYYB
     Dosage: 700 MG, EVERY 6 WEEKS
     Route: 042
     Dates: start: 20230612
  9. INFLECTRA [Suspect]
     Active Substance: INFLIXIMAB-DYYB
     Dosage: 700 MG, EVERY 6 WEEKS
     Route: 042
     Dates: start: 20230809
  10. INFLECTRA [Suspect]
     Active Substance: INFLIXIMAB-DYYB
     Dosage: UNK
  11. AZATHIOPRINE [Concomitant]
     Active Substance: AZATHIOPRINE
     Dosage: 2 TABS
  12. IMURAN [Concomitant]
     Active Substance: AZATHIOPRINE
     Dosage: UNK
  13. PREDNISONE [Concomitant]
     Active Substance: PREDNISONE
     Dosage: UNK

REACTIONS (23)
  - Pneumonia [Recovering/Resolving]
  - Wrist fracture [Unknown]
  - Viral infection [Recovered/Resolved]
  - Rash [Recovered/Resolved]
  - Therapeutic product effect incomplete [Unknown]
  - Urticaria [Recovered/Resolved]
  - Haemoptysis [Recovering/Resolving]
  - Pharyngitis streptococcal [Recovering/Resolving]
  - Pharyngitis bacterial [Recovering/Resolving]
  - Nasopharyngitis [Recovered/Resolved]
  - Constipation [Not Recovered/Not Resolved]
  - Cough [Recovering/Resolving]
  - Productive cough [Recovering/Resolving]
  - Condition aggravated [Unknown]
  - Attention deficit hyperactivity disorder [Not Recovered/Not Resolved]
  - Malaise [Recovered/Resolved]
  - Visual impairment [Unknown]
  - Migraine [Unknown]
  - Illness [Recovering/Resolving]
  - Abdominal discomfort [Recovering/Resolving]
  - COVID-19 [Recovering/Resolving]
  - Off label use [Unknown]
  - Off label use [Unknown]

NARRATIVE: CASE EVENT DATE: 20220101
